FAERS Safety Report 14938470 (Version 1)
Quarter: 2018Q2

REPORT INFORMATION
  Report Type: Spontaneous
  Country: RU (occurrence: RU)
  Receive Date: 20180525
  Receipt Date: 20180525
  Transmission Date: 20180711
  Serious: Yes (Hospitalization)
  Sender: FDA-Public Use
  Company Number: RU-ALEXION PHARMACEUTICALS INC.-A201806206

PATIENT
  Age: 37 Year
  Sex: Female

DRUGS (2)
  1. SOLIRIS [Suspect]
     Active Substance: ECULIZUMAB
     Dosage: 600 MG,Q2W
     Route: 065
  2. SOLIRIS [Suspect]
     Active Substance: ECULIZUMAB
     Indication: PAROXYSMAL NOCTURNAL HAEMOGLOBINURIA
     Dosage: UNK
     Route: 065
     Dates: start: 201610

REACTIONS (2)
  - Anaemia [Unknown]
  - Uterine haemorrhage [Unknown]
